FAERS Safety Report 5525692-5 (Version None)
Quarter: 2007Q4

REPORT INFORMATION
  Report Type: 
  Country: None (occurrence: None)
  Receive Date: 20071126
  Receipt Date: 20071115
  Transmission Date: 20080405
  Serious: Yes (Death, Hospitalization)
  Sender: FDA-Public Use
  Company Number: IN-MERCK-0711USA03871

PATIENT
  Age: 64 Year
  Sex: Male

DRUGS (4)
  1. STROMECTOL [Suspect]
     Indication: STRONGYLOIDIASIS
     Route: 048
  2. PREDNISOLONE [Suspect]
     Indication: EOSINOPHIL COUNT
     Route: 048
  3. PREDNISOLONE [Suspect]
     Indication: URTICARIA
     Route: 048
  4. OMEPRAZOLE [Concomitant]
     Route: 048

REACTIONS (6)
  - CONFUSIONAL STATE [None]
  - HYPOTENSION [None]
  - MULTI-ORGAN FAILURE [None]
  - PYREXIA [None]
  - SEPSIS [None]
  - STRONGYLOIDIASIS [None]
